FAERS Safety Report 17838243 (Version 2)
Quarter: 2020Q2

REPORT INFORMATION
  Report Type: Report from Study
  Country: None (occurrence: ZA)
  Receive Date: 20200528
  Receipt Date: 20200611
  Transmission Date: 20200714
  Serious: Yes (Hospitalization)
  Sender: FDA-Public Use
  Company Number: ZA-ABBVIE-20K-143-3420918-00

PATIENT
  Age: 39 Year
  Sex: Female

DRUGS (4)
  1. HUMIRA [Suspect]
     Active Substance: ADALIMUMAB
     Indication: RHEUMATOID ARTHRITIS
     Route: 058
     Dates: start: 20200424, end: 2020
  2. ENALAPRIL [Concomitant]
     Active Substance: ENALAPRIL
     Indication: HYPERTENSION
     Route: 048
  3. METHOTREXATE. [Concomitant]
     Active Substance: METHOTREXATE
     Indication: RHEUMATOID ARTHRITIS
     Dosage: 4 TABLETS PER OS WEEKLY
     Route: 048
     Dates: start: 2017
  4. ARCADIA [Concomitant]
     Indication: INFLAMMATION
     Dates: start: 2017

REACTIONS (11)
  - Antiphospholipid syndrome [Unknown]
  - Cough [Not Recovered/Not Resolved]
  - Pulmonary embolism [Not Recovered/Not Resolved]
  - Abdominal pain [Recovering/Resolving]
  - Nausea [Not Recovered/Not Resolved]
  - Fibrin D dimer increased [Not Recovered/Not Resolved]
  - Pain [Not Recovered/Not Resolved]
  - Chest pain [Recovering/Resolving]
  - Embolism arterial [Unknown]
  - Renal vein thrombosis [Not Recovered/Not Resolved]
  - Thyroid mass [Unknown]

NARRATIVE: CASE EVENT DATE: 2020
